FAERS Safety Report 7851675-6 (Version None)
Quarter: 2011Q4

REPORT INFORMATION
  Report Type: 
  Country: None (occurrence: None)
  Receive Date: 20111026
  Receipt Date: 20111019
  Transmission Date: 20120403
  Serious: Yes (Life-Threatening, Hospitalization, Other)
  Sender: FDA-Public Use
  Company Number: PHHY2011DE85808

PATIENT
  Age: 87 Year
  Sex: Female
  Weight: 52 kg

DRUGS (2)
  1. DIOVAN [Suspect]
     Indication: HYPERTENSION
     Dosage: 40 MG,1 DF IN MORNING, 0.5 DF AT NOON , 1DF AT 10
     Route: 048
     Dates: start: 20100101
  2. BISOPROLOL [Concomitant]
     Indication: HYPERTENSION
     Dosage: 1 DF, UNK
     Route: 048
     Dates: start: 20100101

REACTIONS (4)
  - HYPOTENSION [None]
  - PALPITATIONS [None]
  - HYPERTENSIVE CRISIS [None]
  - BLOOD PRESSURE INCREASED [None]
